FAERS Safety Report 21348515 (Version 1)
Quarter: 2022Q3

REPORT INFORMATION
  Report Type: Spontaneous
  Country: US (occurrence: None)
  Receive Date: 20220916
  Receipt Date: 20220916
  Transmission Date: 20221027
  Serious: Yes (Other)
  Sender: FDA-Public Use
  Company Number: None

PATIENT
  Age: 61 Year
  Sex: Female

DRUGS (1)
  1. ICATIBANT ACETATE [Suspect]
     Active Substance: ICATIBANT ACETATE
     Dosage: FREQUENCY : AS NEEDED;?
     Route: 058

REACTIONS (1)
  - Product substitution issue [None]

NARRATIVE: CASE EVENT DATE: 20220909
